FAERS Safety Report 4560990-3 (Version None)
Quarter: 2005Q1

REPORT INFORMATION
  Report Type: 
  Country: None (occurrence: None)
  Receive Date: 20050126
  Receipt Date: 20040517
  Transmission Date: 20050727
  Serious: No
  Sender: FDA-Public Use
  Company Number: US-BRISTOL-MYERS SQUIBB COMPANY-12588380

PATIENT
  Age: 75 Year
  Sex: Female

DRUGS (4)
  1. GLUCOPHAGE [Suspect]
     Dates: start: 20010301
  2. SPLENDA [Suspect]
     Dosage: DOSE:  1-2 TEASPOONS DAILY
     Route: 048
     Dates: start: 20030301
  3. GLUCERNA [Concomitant]
  4. BLOOD PRESSURE MEDICATION [Concomitant]

REACTIONS (1)
  - DIARRHOEA [None]
